FAERS Safety Report 9783879 (Version 1)
Quarter: 2013Q4

REPORT INFORMATION
  Report Type: Spontaneous
  Country: US (occurrence: US)
  Receive Date: 20131226
  Receipt Date: 20131226
  Transmission Date: 20140711
  Serious: No
  Sender: FDA-Public Use
  Company Number: US-PFIZER INC-2013365211

PATIENT
  Sex: Female

DRUGS (6)
  1. NORVASC [Suspect]
     Dosage: UNK
  2. ATENOLOL [Suspect]
     Dosage: UNK
  3. PROVERA [Suspect]
     Dosage: 2.5 MG, ( Q 3 DAYS)
  4. EFFEXOR XR [Suspect]
     Dosage: UNK
  5. LISINOPRIL [Suspect]
     Dosage: UNK
  6. LAMICTAL [Suspect]
     Dosage: UNK

REACTIONS (1)
  - Drug hypersensitivity [Unknown]
